FAERS Safety Report 17464699 (Version 2)
Quarter: 2020Q1

REPORT INFORMATION
  Report Type: Spontaneous
  Country: US (occurrence: US)
  Receive Date: 20200226
  Receipt Date: 20200304
  Transmission Date: 20200409
  Serious: Yes (Other)
  Sender: FDA-Public Use
  Company Number: US-SPECGX-T202000481

PATIENT
  Age: 65 Year
  Sex: Female

DRUGS (2)
  1. EXALGO [Suspect]
     Active Substance: HYDROMORPHONE HYDROCHLORIDE
     Indication: PRODUCT USED FOR UNKNOWN INDICATION
     Dosage: 4 MILLIGRAM, Q4H
     Route: 065
  2. HYDROMORPHONE [Suspect]
     Active Substance: HYDROMORPHONE
     Indication: PRODUCT USED FOR UNKNOWN INDICATION
     Dosage: 4 MILLIGRAM, Q4H
     Route: 065

REACTIONS (7)
  - Dysphagia [Recovering/Resolving]
  - Gastrooesophageal reflux disease [Recovering/Resolving]
  - Off label use [Unknown]
  - Weight decreased [Recovering/Resolving]
  - Pneumonia aspiration [Recovering/Resolving]
  - Oesophageal motility disorder [Recovering/Resolving]
  - Inappropriate schedule of product administration [Unknown]
